FAERS Safety Report 5572144-2 (Version None)
Quarter: 2007Q4

REPORT INFORMATION
  Report Type: 
  Country: None (occurrence: None)
  Receive Date: 20071219
  Receipt Date: 20071211
  Transmission Date: 20080405
  Serious: Yes (Other)
  Sender: FDA-Public Use
  Company Number: B0500004A

PATIENT
  Age: 46 Year
  Sex: Male

DRUGS (5)
  1. LAMIVUDINE [Suspect]
     Indication: HIV INFECTION
  2. ZIDOVUDINE [Suspect]
     Indication: HIV INFECTION
  3. EFAVIRENZ [Suspect]
     Indication: HIV INFECTION
  4. VALACYCLOVIR HCL [Suspect]
     Indication: GENITAL HERPES
     Dosage: 1 GRAM(S) / TWICE PER DAY
  5. PHENOXYMETHYLPENICILLIN [Concomitant]

REACTIONS (3)
  - DISEASE RECURRENCE [None]
  - IMMUNE RECONSTITUTION SYNDROME [None]
  - TREATMENT FAILURE [None]
